FAERS Safety Report 12688938 (Version 1)
Quarter: 2016Q3

REPORT INFORMATION
  Report Type: Spontaneous
  Country: US (occurrence: US)
  Receive Date: 20160825
  Receipt Date: 20160825
  Transmission Date: 20161109
  Serious: No
  Sender: FDA-Public Use
  Company Number: US-FRI-1000082095

PATIENT
  Sex: Female

DRUGS (3)
  1. ANTI-DEPRESSANT [Suspect]
     Active Substance: UNSPECIFIED INGREDIENT
  2. LYRICA [Suspect]
     Active Substance: PREGABALIN
  3. LEXAPRO [Suspect]
     Active Substance: ESCITALOPRAM OXALATE

REACTIONS (7)
  - Visual impairment [Unknown]
  - Tremor [Unknown]
  - Rash [Unknown]
  - Unevaluable event [Unknown]
  - Asthenia [Unknown]
  - Impaired driving ability [Unknown]
  - Disturbance in attention [Unknown]
